FAERS Safety Report 20129595 (Version 2)
Quarter: 2022Q1

REPORT INFORMATION
  Report Type: Spontaneous
  Country: BY (occurrence: BY)
  Receive Date: 20211130
  Receipt Date: 20220211
  Transmission Date: 20220423
  Serious: Yes (Life-Threatening, Other)
  Sender: FDA-Public Use
  Company Number: BY-INCYTE CORPORATION-2021IN010935

PATIENT
  Sex: Female

DRUGS (3)
  1. ICLUSIG [Suspect]
     Active Substance: PONATINIB
     Indication: Philadelphia positive acute lymphocytic leukaemia
     Dosage: 45 MILLIGRAM, QD
     Route: 065
     Dates: start: 20200810
  2. ICLUSIG [Suspect]
     Active Substance: PONATINIB
     Indication: Tyrosine kinase mutation
     Dosage: UNK
     Route: 065
  3. Urosan [Concomitant]
     Indication: Product used for unknown indication
     Dosage: 15 MILLIGRAM/KILOGRAM
     Route: 065

REACTIONS (8)
  - Urinary retention [Recovering/Resolving]
  - Weight gain poor [Recovering/Resolving]
  - Constipation [Unknown]
  - Toxic neuropathy [Recovering/Resolving]
  - Cardiomyopathy [Unknown]
  - Hypergonadism [Unknown]
  - Tachycardia [Unknown]
  - Malnutrition [Unknown]

NARRATIVE: CASE EVENT DATE: 20201101
